FAERS Safety Report 16692142 (Version 2)
Quarter: 2019Q4

REPORT INFORMATION
  Report Type: Spontaneous
  Country: US (occurrence: US)
  Receive Date: 20190812
  Receipt Date: 20191014
  Transmission Date: 20200122
  Serious: Yes (Hospitalization, Other)
  Sender: FDA-Public Use
  Company Number: US-BAYER-2019-144681

PATIENT
  Age: 19 Year
  Sex: Male

DRUGS (2)
  1. KOGENATE FS [Suspect]
     Active Substance: ANTIHEMOPHILIC FACTOR, HUMAN RECOMBINANT
     Indication: FACTOR VIII DEFICIENCY
     Dosage: UNK, TIW (SINCE 9 YEARS OLD)
     Route: 042
  2. KOGENATE FS [Suspect]
     Active Substance: ANTIHEMOPHILIC FACTOR, HUMAN RECOMBINANT
     Indication: FACTOR VIII DEFICIENCY
     Dosage: UNK, QOD FOR NASAL BLEEDING
     Route: 042
     Dates: start: 2018, end: 2018

REACTIONS (6)
  - Myalgia [Recovered/Resolved]
  - Epistaxis [Recovered/Resolved]
  - Recalled product [None]
  - Haemorrhage [None]
  - Arthralgia [Recovered/Resolved]
  - Recalled product administered [None]

NARRATIVE: CASE EVENT DATE: 201805
